FAERS Safety Report 4832092-X (Version None)
Quarter: 2005Q4

REPORT INFORMATION
  Report Type: 
  Country: None (occurrence: None)
  Receive Date: 20051116
  Receipt Date: 20051031
  Transmission Date: 20060501
  Serious: Yes (Life-Threatening, Hospitalization)
  Sender: FDA-Public Use
  Company Number: 219413

PATIENT
  Age: 75 Year
  Sex: Female

DRUGS (8)
  1. AVASTIN [Suspect]
     Indication: COLON CANCER
     Dosage: 350 MG, Q2W, INTRAVENOUS
     Route: 042
     Dates: start: 20050905, end: 20051006
  2. IRINOTECAN HCL [Suspect]
     Indication: COLON CANCER
     Dosage: 350 MG, Q2W, INTRAVENOUS
     Route: 042
     Dates: start: 20050905, end: 20051006
  3. HYDROCHLOROTHIAZIDE [Concomitant]
  4. ACEBUTOLOL [Concomitant]
  5. METOCLOPRAMID-HCL (METOCLOPRAMIDE HYDROCHLORIDE) [Concomitant]
  6. LOPERAMIDE [Concomitant]
  7. FLUOROURACIL [Concomitant]
  8. CALCIUM FOLINATE (LEUCOVORIN CALCIUM) [Concomitant]

REACTIONS (9)
  - ABDOMINAL PAIN UPPER [None]
  - C-REACTIVE PROTEIN INCREASED [None]
  - COLON CANCER [None]
  - ILEAL PERFORATION [None]
  - LARGE INTESTINAL ULCER [None]
  - METASTASES TO PLEURA [None]
  - PERITONITIS [None]
  - PYREXIA [None]
  - SURGICAL PROCEDURE REPEATED [None]
